FAERS Safety Report 11952934 (Version 2)
Quarter: 2016Q1

REPORT INFORMATION
  Report Type: Report from Study
  Country: US (occurrence: US)
  Receive Date: 20160126
  Receipt Date: 20160126
  Transmission Date: 20160526
  Serious: No
  Sender: FDA-Public Use
  Company Number: US-ABBVIE-15K-163-1357450-00

PATIENT
  Age: 51 Year
  Sex: Female
  Weight: 98.06 kg

DRUGS (1)
  1. HUMIRA [Suspect]
     Active Substance: ADALIMUMAB
     Indication: RHEUMATOID ARTHRITIS
     Route: 058
     Dates: end: 201410

REACTIONS (9)
  - Scab [Not Recovered/Not Resolved]
  - Laryngitis [Not Recovered/Not Resolved]
  - Infection [Recovered/Resolved]
  - Nasal congestion [Not Recovered/Not Resolved]
  - Diabetes mellitus [Not Recovered/Not Resolved]
  - Postoperative wound infection [Recovering/Resolving]
  - Skin mass [Recovering/Resolving]
  - Erythema nodosum [Not Recovered/Not Resolved]
  - Cough [Not Recovered/Not Resolved]

NARRATIVE: CASE EVENT DATE: 2014
